FAERS Safety Report 5875117-5 (Version None)
Quarter: 2008Q3

REPORT INFORMATION
  Report Type: 
  Country: None (occurrence: None)
  Receive Date: 20080909
  Receipt Date: 20080905
  Transmission Date: 20090109
  Serious: Yes (Hospitalization)
  Sender: FDA-Public Use
  Company Number: A0746623A

PATIENT
  Age: 76 Year
  Sex: Male
  Weight: 88 kg

DRUGS (8)
  1. AVANDAMET [Suspect]
     Route: 048
     Dates: start: 20050101, end: 20080501
  2. FUROSEMIDE [Concomitant]
     Dates: start: 20080501
  3. ATENSINA [Concomitant]
     Dates: start: 20080501
  4. AMLODIPINE [Concomitant]
     Dates: start: 20050501
  5. SIMVASTATIN [Concomitant]
     Dates: start: 20050101
  6. GABAPENTIN [Concomitant]
     Dates: start: 20050101
  7. METFORMIN [Concomitant]
     Dates: start: 20050101, end: 20050501
  8. INSULIN [Concomitant]
     Dates: start: 20050101

REACTIONS (2)
  - BRADYCARDIA [None]
  - HYPERKALAEMIA [None]
